FAERS Safety Report 10266962 (Version 1)
Quarter: 2014Q2

REPORT INFORMATION
  Report Type: Spontaneous
  Country: US (occurrence: None)
  Receive Date: 20140625
  Receipt Date: 20140625
  Transmission Date: 20141212
  Serious: Yes (Hospitalization)
  Sender: FDA-Public Use
  Company Number: FDB-2014-026

PATIENT
  Age: 53 Year
  Sex: Male
  Weight: 126.1 kg

DRUGS (1)
  1. SULFUR COLLOID TECHNETIUM TC99M [Suspect]
     Indication: LIVER SCAN
     Dosage: 4.5 MCI, IV
     Route: 042
     Dates: start: 20140611

REACTIONS (7)
  - Chest pain [None]
  - Dyspnoea [None]
  - Heart rate increased [None]
  - Respiratory arrest [None]
  - Hypersensitivity [None]
  - Anaphylactic reaction [None]
  - Ventricular tachycardia [None]
